FAERS Safety Report 15003375 (Version 6)
Quarter: 2020Q2

REPORT INFORMATION
  Report Type: Report from Study
  Country: DE (occurrence: DE)
  Receive Date: 20180613
  Receipt Date: 20200506
  Transmission Date: 20200713
  Serious: Yes (Death, Other)
  Sender: FDA-Public Use
  Company Number: DE-ACCORD-068343

PATIENT
  Age: 51 Year
  Sex: Male
  Weight: 83 kg

DRUGS (12)
  1. FORTECORTIN [Concomitant]
     Active Substance: DEXAMETHASONE
     Dosage: 8 MG, UNK PER CYCLE
     Route: 048
     Dates: start: 20170125, end: 20170322
  2. ALOXI [Concomitant]
     Active Substance: PALONOSETRON HYDROCHLORIDE
     Indication: PROPHYLAXIS OF NAUSEA AND VOMITING
     Dosage: 250 MUG, UNK PER CYCLE
     Route: 042
     Dates: start: 20170125, end: 20170322
  3. FLUOROURACIL. [Suspect]
     Active Substance: FLUOROURACIL
     Indication: COLORECTAL CANCER METASTATIC
     Dosage: RECEIVED 470-500 MG AND 2600-4800 MG
     Route: 040
     Dates: start: 20170125, end: 20170322
  4. IRINOTECAN [Suspect]
     Active Substance: IRINOTECAN
     Indication: COLORECTAL CANCER METASTATIC
     Dosage: 290-300 MG, UNK
     Dates: start: 20170125, end: 20170322
  5. PANTOPRAZOLE RATIOPHARM [Concomitant]
     Indication: PROPHYLAXIS
     Dosage: 20 MG, UNK
     Route: 048
     Dates: start: 20170224
  6. FOLINIC ACID [Suspect]
     Active Substance: LEUCOVORIN
     Indication: COLORECTAL CANCER METASTATIC
     Dosage: 800 MG, UNK
     Dates: start: 20170125, end: 20170322
  7. PANITUMUMAB [Suspect]
     Active Substance: PANITUMUMAB
     Indication: COLORECTAL CANCER METASTATIC
     Dosage: TIME INTERVAL BEGIN DRUG ADMINISTRATION,START EVENT 78 D TIME INTERVAL BEGINNING DRUG,END EVENT 22 D
     Route: 042
     Dates: start: 20170125, end: 20170322
  8. GRANISETRON [Concomitant]
     Active Substance: GRANISETRON
     Indication: PROPHYLAXIS OF NAUSEA AND VOMITING
     Dosage: 2 MG, UNK PER CYCLE
     Route: 048
     Dates: start: 20170125, end: 20170322
  9. HYDROCORTISONE. [Concomitant]
     Active Substance: HYDROCORTISONE
     Indication: PROPHYLAXIS
     Dosage: 4 UNK, UNK
     Route: 061
     Dates: start: 20170125
  10. NOVALGIN [Concomitant]
     Indication: PAIN
     Route: 048
  11. VECTIBIX [Suspect]
     Active Substance: PANITUMUMAB
     Indication: COLORECTAL CANCER METASTATIC
     Route: 042
     Dates: start: 20170125
  12. DOXYCYCLIN RATIOPHARM [Concomitant]
     Indication: PROPHYLAXIS
     Dosage: 100 MG, QD
     Route: 048
     Dates: start: 20170125

REACTIONS (5)
  - Metastases to lung [Fatal]
  - Rash [Fatal]
  - Colorectal cancer metastatic [Fatal]
  - Malignant neoplasm progression [Fatal]
  - Disease progression [Fatal]

NARRATIVE: CASE EVENT DATE: 20170208
